FAERS Safety Report 4526852-2 (Version None)
Quarter: 2004Q4

REPORT INFORMATION
  Report Type: 
  Country: None (occurrence: None)
  Receive Date: 20041213
  Receipt Date: 20041129
  Transmission Date: 20050328
  Serious: Yes (Hospitalization)
  Sender: FDA-Public Use
  Company Number: 2004105297

PATIENT
  Age: 32 Year
  Sex: Male

DRUGS (10)
  1. DEPO-MEDROL [Suspect]
     Indication: ILL-DEFINED DISORDER
     Dates: end: 20020501
  2. PREDNISONE [Suspect]
     Indication: ILL-DEFINED DISORDER
     Dosage: 60 MG, ORAL
     Route: 048
     Dates: start: 20011201, end: 20020701
  3. METHOTREXATE [Suspect]
     Indication: ILL-DEFINED DISORDER
     Dates: start: 20011201, end: 20020701
  4. LAMIVUDINE [Suspect]
     Indication: ILL-DEFINED DISORDER
     Dosage: 300 MG (BID), ORAL
     Route: 048
     Dates: start: 20020501
  5. STAVUDINE [Suspect]
     Indication: ILL-DEFINED DISORDER
     Dosage: 80 MG (BID), ORAL
     Route: 048
     Dates: start: 20020501
  6. KALETRA [Suspect]
     Indication: ILL-DEFINED DISORDER
     Dosage: 6 DOSE FORM (TID), ORAL
     Route: 048
     Dates: start: 20020501
  7. VINCRISTINE [Suspect]
     Indication: ILL-DEFINED DISORDER
     Dates: start: 20011201, end: 20020701
  8. IDARUBICIN HCL [Suspect]
     Indication: ILL-DEFINED DISORDER
     Dates: start: 20011201, end: 20020701
  9. ASPARAGINASE (ASPARAGINASE) [Suspect]
     Indication: ILL-DEFINED DISORDER
     Dates: start: 20011201, end: 20020701
  10. CYTARABINE [Suspect]
     Indication: ILL-DEFINED DISORDER
     Dates: start: 20011201, end: 20020701

REACTIONS (2)
  - HYPERTRIGLYCERIDAEMIA [None]
  - OSTEONECROSIS [None]
